FAERS Safety Report 10067494 (Version 1)
Quarter: 2014Q2

REPORT INFORMATION
  Report Type: Spontaneous
  Country: BR (occurrence: BR)
  Receive Date: 20140409
  Receipt Date: 20140409
  Transmission Date: 20141212
  Serious: Yes (Other)
  Sender: FDA-Public Use
  Company Number: BR-JNJFOC-20140403640

PATIENT
  Sex: Male
  Weight: 84 kg

DRUGS (8)
  1. SIMPONI [Suspect]
     Indication: RHEUMATOID ARTHRITIS
     Route: 058
     Dates: start: 201308
  2. PREDNISONE [Concomitant]
     Route: 065
  3. CALCIUM CARBONATE [Concomitant]
     Route: 065
  4. OMEPRAZOLE [Concomitant]
     Route: 065
  5. PARACETAMOL [Concomitant]
     Route: 065
  6. SIMVASTATIN [Concomitant]
     Route: 065
  7. AMITRIPTYLINE [Concomitant]
     Route: 065
  8. LEFLUNOMIDE [Concomitant]
     Route: 065

REACTIONS (2)
  - Diabetes mellitus [Unknown]
  - Arthralgia [Recovered/Resolved]
